FAERS Safety Report 7485725-6 (Version None)
Quarter: 2011Q2

REPORT INFORMATION
  Report Type: 
  Country: None (occurrence: None)
  Receive Date: 20110517
  Receipt Date: 20110511
  Transmission Date: 20111010
  Serious: Yes (Life-Threatening)
  Sender: FDA-Public Use
  Company Number: JP-MERCK-1105USA02365

PATIENT
  Age: 29 Year
  Sex: Female

DRUGS (2)
  1. HYDROCORTONE [Suspect]
     Indication: TINNITUS
     Route: 042
  2. SOLU-CORTEF [Suspect]
     Indication: ALLERGY TEST
     Route: 065

REACTIONS (2)
  - ALLERGY TEST POSITIVE [None]
  - ANAPHYLACTIC SHOCK [None]
